FAERS Safety Report 5830063-8 (Version None)
Quarter: 2008Q3

REPORT INFORMATION
  Report Type: 
  Country: None (occurrence: None)
  Receive Date: 20080722
  Receipt Date: 20080403
  Transmission Date: 20090109
  Serious: Yes (Hospitalization)
  Sender: FDA-Public Use
  Company Number: US2008BI008928

PATIENT
  Sex: Female

DRUGS (1)
  1. AVONEX [Suspect]
     Indication: MULTIPLE SCLEROSIS
     Dosage: IM
     Route: 030
     Dates: start: 20031010

REACTIONS (7)
  - BLOOD PRESSURE INCREASED [None]
  - DEPRESSION [None]
  - HEART RATE INCREASED [None]
  - INTERVERTEBRAL DISC PROTRUSION [None]
  - MASS [None]
  - ROAD TRAFFIC ACCIDENT [None]
  - SHOCK [None]
